FAERS Safety Report 7603858-8 (Version None)
Quarter: 2011Q3

REPORT INFORMATION
  Report Type: 
  Country: None (occurrence: None)
  Receive Date: 20110712
  Receipt Date: 20110709
  Transmission Date: 20111222
  Serious: No
  Sender: FDA-Public Use
  Company Number: US-PFIZER INC-2011154765

PATIENT
  Age: 3 Year
  Sex: Male
  Weight: 17.687 kg

DRUGS (1)
  1. CHILDREN'S ADVIL [Suspect]
     Indication: SCRATCH
     Dosage: UNK, 4X/DAY
     Route: 048
     Dates: start: 20110705, end: 20110701

REACTIONS (4)
  - ERYTHEMA [None]
  - RASH MACULAR [None]
  - RASH [None]
  - URTICARIA [None]
